FAERS Safety Report 7543800-1 (Version None)
Quarter: 2011Q2

REPORT INFORMATION
  Report Type: 
  Country: None (occurrence: None)
  Receive Date: 20110613
  Receipt Date: 20110613
  Transmission Date: 20111010
  Serious: Yes (Hospitalization, Other)
  Sender: FDA-Public Use
  Company Number: FR-PFIZER INC-2005123371

PATIENT
  Age: 91 Year
  Sex: Male
  Weight: 67 kg

DRUGS (5)
  1. LANZOR [Concomitant]
     Route: 048
     Dates: start: 20050312, end: 20050313
  2. FELDENE [Suspect]
     Indication: ILL-DEFINED DISORDER
     Route: 048
     Dates: end: 20050313
  3. ACETAMINOPHEN W/ PROPOXYPHENE HCL [Concomitant]
     Route: 048
     Dates: start: 20050312, end: 20050313
  4. ALDACTAZIDE [Interacting]
     Indication: ILL-DEFINED DISORDER
     Route: 048
     Dates: start: 20050312, end: 20050313
  5. IBUPROFEN (ADVIL) [Interacting]
     Route: 048
     Dates: start: 20050312, end: 20050313

REACTIONS (3)
  - RENAL FAILURE ACUTE [None]
  - KIDNEY INFECTION [None]
  - DRUG INTERACTION [None]
